FAERS Safety Report 22523463 (Version 1)
Quarter: 2023Q2

REPORT INFORMATION
  Report Type: Spontaneous
  Country: PT (occurrence: PT)
  Receive Date: 20230606
  Receipt Date: 20230606
  Transmission Date: 20230722
  Serious: Yes (Hospitalization, Other)
  Sender: FDA-Public Use
  Company Number: PT-002147023-NVSC2023PT125925

PATIENT
  Age: 50 Year
  Sex: Male

DRUGS (9)
  1. LUTATHERA [Suspect]
     Active Substance: LUTETIUM OXODOTREOTIDE LU-177
     Indication: Product used for unknown indication
     Dosage: 7.4 GBQ (200 MCI)
     Route: 065
  2. SANDOSTATIN LAR DEPOT [Suspect]
     Active Substance: OCTREOTIDE ACETATE
     Indication: Product used for unknown indication
     Dosage: 30 MG, QMO
     Route: 065
     Dates: start: 20130805
  3. SANDOSTATIN LAR DEPOT [Suspect]
     Active Substance: OCTREOTIDE ACETATE
  4. SANDOSTATIN LAR DEPOT [Suspect]
     Active Substance: OCTREOTIDE ACETATE
  5. AZATHIOPRINE [Concomitant]
     Active Substance: AZATHIOPRINE
     Indication: Product used for unknown indication
     Dosage: 225 MG (100 + 125 MG), QD
     Route: 065
  6. PREDNISOLONE [Concomitant]
     Active Substance: PREDNISOLONE
     Indication: Product used for unknown indication
     Dosage: UNK (IN SOS)
     Route: 065
  7. SUNITINIB [Concomitant]
     Active Substance: SUNITINIB
     Indication: Product used for unknown indication
     Dosage: 37.5 MG, QD
     Route: 065
     Dates: start: 201901
  8. CAPECITABINE [Concomitant]
     Active Substance: CAPECITABINE
     Indication: Product used for unknown indication
     Dosage: 750 MG/M2, BID (DAY 1 TO 14)
     Route: 065
     Dates: start: 202003
  9. TEMOZOLOMIDE [Concomitant]
     Active Substance: TEMOZOLOMIDE
     Indication: Product used for unknown indication
     Dosage: 150 MG/M2 (DAY 10 TO 14 X 12)
     Route: 065

REACTIONS (16)
  - Pulmonary tuberculosis [Unknown]
  - Haemoptysis [Unknown]
  - Metastases to pancreas [Unknown]
  - Metastases to liver [Unknown]
  - Hepatic lesion [Unknown]
  - Hepatic mass [Unknown]
  - Hepatic artery stenosis [Unknown]
  - Pancreatic neuroendocrine tumour [Unknown]
  - Neutropenia [Unknown]
  - Liver disorder [Unknown]
  - Disease progression [Unknown]
  - Graft loss [Unknown]
  - Headache [Unknown]
  - Abdominal pain [Unknown]
  - Diarrhoea [Unknown]
  - Therapy partial responder [Unknown]

NARRATIVE: CASE EVENT DATE: 20131001
